FAERS Safety Report 7635774-X (Version None)
Quarter: 2011Q3

REPORT INFORMATION
  Report Type: 
  Country: None (occurrence: None)
  Receive Date: 20110726
  Receipt Date: 20110719
  Transmission Date: 20111222
  Serious: Yes (Other)
  Sender: FDA-Public Use
  Company Number: FR-BAXTER-2011BH023802

PATIENT
  Age: 56 Year
  Sex: Female

DRUGS (7)
  1. MESNA [Suspect]
     Indication: UTERINE CANCER
     Route: 042
     Dates: start: 20110715, end: 20110716
  2. EPIRUBICIN HYDROCHLORIDE [Suspect]
     Indication: UTERINE CANCER
     Route: 042
     Dates: start: 20110715, end: 20110716
  3. ACETAMINOPHEN [Concomitant]
     Indication: PAIN
     Route: 042
  4. LASIX [Concomitant]
     Indication: PRODUCT USED FOR UNKNOWN INDICATION
     Route: 048
  5. IFOSFAMIDE [Suspect]
     Indication: UTERINE CANCER
     Route: 042
     Dates: start: 20110715, end: 20110716
  6. POTASSIUM CHLORIDE [Concomitant]
     Indication: PRODUCT USED FOR UNKNOWN INDICATION
     Route: 048
  7. PREDNISONE [Concomitant]
     Indication: PRODUCT USED FOR UNKNOWN INDICATION
     Route: 048

REACTIONS (5)
  - DISORIENTATION [None]
  - URINARY INCONTINENCE [None]
  - FALL [None]
  - FAECAL INCONTINENCE [None]
  - SPEECH DISORDER [None]
